FAERS Safety Report 5460351-9 (Version None)
Quarter: 2007Q3

REPORT INFORMATION
  Report Type: 
  Country: None (occurrence: None)
  Receive Date: 20070919
  Receipt Date: 20070626
  Transmission Date: 20080115
  Serious: No
  Sender: FDA-Public Use
  Company Number: US-ASTRAZENECA-2007UW15227

PATIENT
  Age: 57 Year
  Sex: Male

DRUGS (5)
  1. SEROQUEL [Suspect]
     Route: 048
  2. LEXAPRO [Concomitant]
  3. WELLBUTRIN [Concomitant]
  4. RESTORIL [Concomitant]
  5. VALIUM [Concomitant]
     Dosage: AND HS

REACTIONS (4)
  - MOOD ALTERED [None]
  - SENSATION OF HEAVINESS [None]
  - SOMNOLENCE [None]
  - SPEECH DISORDER [None]
